FAERS Safety Report 4922441-6 (Version None)
Quarter: 2006Q1

REPORT INFORMATION
  Report Type: 
  Country: None (occurrence: None)
  Receive Date: 20060224
  Receipt Date: 20051207
  Transmission Date: 20060701
  Serious: Yes (Life-Threatening, Hospitalization)
  Sender: FDA-Public Use
  Company Number: DE-BRISTOL-MYERS SQUIBB COMPANY-13218813

PATIENT
  Age: 56 Year
  Sex: Male

DRUGS (16)
  1. CETUXIMAB [Suspect]
     Indication: NON-SMALL CELL LUNG CANCER
     Route: 041
     Dates: start: 20050914
  2. CISPLATIN [Suspect]
     Indication: NON-SMALL CELL LUNG CANCER
     Route: 042
     Dates: start: 20050914
  3. VINORELBINE [Suspect]
     Indication: NON-SMALL CELL LUNG CANCER
     Route: 042
     Dates: start: 20050914
  4. CIPROFLOXACIN [Concomitant]
  5. ACETYLCYSTEINE [Concomitant]
  6. METAMIZOL [Concomitant]
  7. CEFTRIAXONE [Concomitant]
  8. ONDANSETRON [Concomitant]
  9. RANITIDINE [Concomitant]
  10. DIMETINDENE [Concomitant]
  11. ACETAMINOPHEN [Concomitant]
  12. DARBEPOETIN ALFA [Concomitant]
  13. METOCLOPRAMIDE [Concomitant]
  14. DOLASETRON MESYLATE [Concomitant]
  15. DOLASETRON [Concomitant]
  16. NADROPARIN CALCIUM [Concomitant]

REACTIONS (1)
  - INTRACRANIAL VENOUS SINUS THROMBOSIS [None]
